FAERS Safety Report 7991997-1 (Version None)
Quarter: 2011Q4

REPORT INFORMATION
  Report Type: 
  Country: None (occurrence: None)
  Receive Date: 20111219
  Receipt Date: 20101112
  Transmission Date: 20120403
  Serious: No
  Sender: FDA-Public Use
  Company Number: US-ASTRAZENECA-2010SE54130

PATIENT
  Age: 67 Year
  Sex: Female
  Weight: 90.7 kg

DRUGS (3)
  1. CRESTOR [Suspect]
     Route: 048
  2. ZOLOFT [Concomitant]
  3. DIOVAN [Concomitant]

REACTIONS (3)
  - ARTHRALGIA [None]
  - PELVIC PAIN [None]
  - HYPOKINESIA [None]
